FAERS Safety Report 6291814-4 (Version None)
Quarter: 2009Q3

REPORT INFORMATION
  Report Type: 
  Country: None (occurrence: None)
  Receive Date: 20090730
  Receipt Date: 20090721
  Transmission Date: 20100115
  Serious: Yes (Other)
  Sender: FDA-Public Use
  Company Number: BR-ABBOTT-09P-020-0586589-00

PATIENT
  Sex: Female
  Weight: 53 kg

DRUGS (5)
  1. HUMIRA [Suspect]
     Indication: RHEUMATOID ARTHRITIS
     Route: 058
     Dates: end: 20090707
  2. FOLIC ACID [Concomitant]
     Indication: DRUG USE FOR UNKNOWN INDICATION
     Route: 048
     Dates: end: 20090715
  3. PREDNISONE TAB [Concomitant]
     Indication: RHEUMATOID ARTHRITIS
     Route: 048
     Dates: end: 20090715
  4. PREDNISONE TAB [Concomitant]
     Indication: ARTHRALGIA
  5. CALCIUM [Concomitant]
     Indication: MINERAL SUPPLEMENTATION
     Route: 048
     Dates: end: 20090715

REACTIONS (5)
  - BONE EROSION [None]
  - BUNION [None]
  - GINGIVITIS [None]
  - INCORRECT DRUG ADMINISTRATION DURATION [None]
  - WISDOM TEETH REMOVAL [None]
